FAERS Safety Report 11741172 (Version 1)
Quarter: 2015Q4

REPORT INFORMATION
  Report Type: Spontaneous
  Country: US (occurrence: US)
  Receive Date: 20151116
  Receipt Date: 20151116
  Transmission Date: 20160304
  Serious: No
  Sender: FDA-Public Use
  Company Number: US-AMGEN-USASP2015120401

PATIENT
  Sex: Male

DRUGS (1)
  1. ENBREL [Suspect]
     Active Substance: ETANERCEPT
     Indication: PSORIASIS
     Dosage: UNK
     Route: 065
     Dates: start: 2003

REACTIONS (6)
  - Skin disorder [Unknown]
  - Fatigue [Unknown]
  - Swelling [Unknown]
  - Local swelling [Unknown]
  - Pain of skin [Unknown]
  - Erythema [Unknown]
